FAERS Safety Report 13577038 (Version 1)
Quarter: 2017Q2

REPORT INFORMATION
  Report Type: Spontaneous
  Country: US (occurrence: US)
  Receive Date: 20170524
  Receipt Date: 20170524
  Transmission Date: 20170830
  Serious: No
  Sender: FDA-Public Use
  Company Number: US-TEVA-765837ACC

PATIENT
  Sex: Female

DRUGS (7)
  1. VITAMIN D3 [Concomitant]
     Active Substance: CHOLECALCIFEROL
  2. LOSARTAN. [Concomitant]
     Active Substance: LOSARTAN
  3. COPAXONE [Suspect]
     Active Substance: GLATIRAMER ACETATE
     Indication: MULTIPLE SCLEROSIS
     Dosage: 20 MILLIGRAM DAILY;
     Route: 058
     Dates: start: 20091113
  4. BACLOFEN. [Concomitant]
     Active Substance: BACLOFEN
  5. SIMVASTATIN. [Concomitant]
     Active Substance: SIMVASTATIN
  6. FOLIC ACID. [Concomitant]
     Active Substance: FOLIC ACID
  7. AMITRIPTYLIN [Concomitant]
     Active Substance: AMITRIPTYLINE

REACTIONS (3)
  - Mass [Unknown]
  - Anxiety [Unknown]
  - Goitre [Unknown]

NARRATIVE: CASE EVENT DATE: 2015
